APPROVED DRUG PRODUCT: CIBACALCIN
Active Ingredient: CALCITONIN HUMAN
Strength: 0.5MG/VIAL
Dosage Form/Route: INJECTABLE;INJECTION
Application: N018470 | Product #001
Applicant: NOVARTIS PHARMACEUTICALS CORP
Approved: Oct 31, 1986 | RLD: No | RS: No | Type: DISCN